FAERS Safety Report 5454752-2 (Version None)
Quarter: 2007Q3

REPORT INFORMATION
  Report Type: 
  Country: None (occurrence: None)
  Receive Date: 20070917
  Receipt Date: 20070913
  Transmission Date: 20080115
  Serious: Yes (Hospitalization)
  Sender: FDA-Public Use
  Company Number: GBWYE305313SEP07

PATIENT
  Sex: Male

DRUGS (1)
  1. EFFEXOR [Suspect]
     Indication: DEPRESSION
     Dosage: 225MG, FREQUENCY UNKNOWN
     Route: 048

REACTIONS (2)
  - ATRIAL FLUTTER [None]
  - ELECTROCARDIOGRAM T WAVE INVERSION [None]
